FAERS Safety Report 12331160 (Version 11)
Quarter: 2017Q4

REPORT INFORMATION
  Report Type: Report from Study
  Country: DE (occurrence: DE)
  Receive Date: 20160504
  Receipt Date: 20171124
  Transmission Date: 20180320
  Serious: Yes (Other)
  Sender: FDA-Public Use
  Company Number: PHHY2016DE058908

PATIENT
  Age: 51 Year
  Sex: Female
  Weight: 93.6 kg

DRUGS (18)
  1. BISOPROLOL [Concomitant]
     Active Substance: BISOPROLOL
     Indication: HYPERTENSION
     Dosage: 5 MG, QD
     Route: 048
     Dates: start: 1982
  2. FAMENITA [Concomitant]
     Active Substance: PROGESTERONE
     Indication: MENORRHAGIA
     Dosage: 200 MG, (12 DAYS PER MONTH)
     Route: 048
     Dates: start: 201509
  3. CLONIDINE. [Concomitant]
     Active Substance: CLONIDINE
     Dosage: 75 MG, BID
     Route: 048
     Dates: start: 20160322
  4. HYDROCORTISONE. [Concomitant]
     Active Substance: HYDROCORTISONE
     Indication: HYPOPITUITARISM
     Dosage: 5 MG, QD
     Route: 048
     Dates: start: 20150309, end: 20160405
  5. LEVOTHYROXINE SODIUM. [Concomitant]
     Active Substance: LEVOTHYROXINE SODIUM
     Indication: HYPERTHYROIDISM
     Dosage: 50 MG, QD
     Route: 048
     Dates: start: 1982
  6. CETIRIZINE [Concomitant]
     Active Substance: CETIRIZINE HYDROCHLORIDE
     Indication: ATOPY
     Dosage: 10 MG, PRN
     Route: 065
     Dates: start: 2005
  7. RAMIPRIL. [Concomitant]
     Active Substance: RAMIPRIL
     Indication: HYPERTENSION
     Dosage: 10 MG, QD
     Route: 048
     Dates: start: 1982
  8. LERCANIDIPINE [Concomitant]
     Active Substance: LERCANIDIPINE
     Indication: HYPERTENSION
     Dosage: 20 MG, QD
     Route: 048
     Dates: start: 2010
  9. CLONIDINE. [Concomitant]
     Active Substance: CLONIDINE
     Indication: HYPERTENSION
     Dosage: 75 MG, QD
     Route: 065
     Dates: start: 2014, end: 20160321
  10. BUDECORT [Concomitant]
     Active Substance: BUDESONIDE
     Indication: ASTHMA
     Dosage: 200 UG, BID
     Route: 065
     Dates: start: 2005
  11. POTASSIUM IODIDE. [Concomitant]
     Active Substance: POTASSIUM IODIDE
     Indication: HYPERTHYROIDISM
     Dosage: 150 MG, QD
     Route: 048
     Dates: start: 1982
  12. VIGANTOLETTEN [Concomitant]
     Active Substance: CHOLECALCIFEROL
     Indication: OSTEOPENIA
     Dosage: 1000 IU, BID
     Route: 058
     Dates: start: 20150826
  13. ALLOPURINOL. [Concomitant]
     Active Substance: ALLOPURINOL
     Indication: HYPERURICAEMIA
     Dosage: 300 MG, QD
     Route: 048
     Dates: start: 2004
  14. SIGNIFOR [Suspect]
     Active Substance: PASIREOTIDE
     Indication: PITUITARY-DEPENDENT CUSHING^S SYNDROME
     Dosage: 1.2 MG, QD
     Route: 058
     Dates: start: 20160322
  15. SALBUTAMOL [Concomitant]
     Active Substance: ALBUTEROL
     Indication: ASTHMA
     Dosage: 0.1 MG, PRN
     Route: 065
     Dates: start: 2005
  16. CALCIUM [Concomitant]
     Active Substance: CALCIUM
     Indication: OSTEOPENIA
     Dosage: 500 MG, BID
     Route: 048
     Dates: start: 20150826, end: 20160315
  17. L-THYROX JOD HEXAL [Concomitant]
     Indication: HYPOPITUITARISM
     Dosage: 150 MG, UNK (50/150 MG)
     Route: 065
     Dates: start: 20150309
  18. FERRO-SANOL DUODENAL [Concomitant]
     Active Substance: FERROUS GLYCINE SULFATE
     Indication: MENORRHAGIA
     Dosage: 50 MG, QD
     Route: 048
     Dates: start: 20160501

REACTIONS (8)
  - Dry mouth [Unknown]
  - Weight decreased [Unknown]
  - Weight decreased [Recovered/Resolved]
  - Electrocardiogram QT prolonged [Unknown]
  - Fatigue [Unknown]
  - Type 2 diabetes mellitus [Not Recovered/Not Resolved]
  - Cholelithiasis [Unknown]
  - Electrocardiogram QT prolonged [Recovered/Resolved]

NARRATIVE: CASE EVENT DATE: 20160406
